FAERS Safety Report 8053841-6 (Version None)
Quarter: 2012Q1

REPORT INFORMATION
  Report Type: 
  Country: None (occurrence: None)
  Receive Date: 20120118
  Receipt Date: 20120116
  Transmission Date: 20120608
  Serious: Yes (Death, Hospitalization, Other)
  Sender: FDA-Public Use
  Company Number: IT-PFIZER INC-2011267736

PATIENT
  Age: 83 Year
  Sex: Female

DRUGS (5)
  1. ZOLOFT [Suspect]
     Indication: DEPRESSION
     Dosage: 50 MG DAILY
     Route: 048
     Dates: start: 20111014, end: 20111028
  2. LOPRESSOR [Concomitant]
     Route: 048
  3. LEVOTHYROXINE SODIUM [Concomitant]
     Route: 048
  4. WARFARIN SODIUM [Concomitant]
     Indication: ATRIAL FIBRILLATION
     Route: 048
  5. POTASSIUM CHLORIDE [Concomitant]
     Route: 048

REACTIONS (6)
  - SHOCK [None]
  - HAEMATURIA [None]
  - HYPONATRAEMIA [None]
  - SOPOR [None]
  - PYURIA [None]
  - MYOCARDIAL INFARCTION [None]
